FAERS Safety Report 5074724-X (Version None)
Quarter: 2006Q3

REPORT INFORMATION
  Report Type: 
  Country: None (occurrence: None)
  Receive Date: 20060803
  Receipt Date: 20060720
  Transmission Date: 20061208
  Serious: Yes (Hospitalization)
  Sender: FDA-Public Use
  Company Number: B0432521A

PATIENT
  Age: 24 Month
  Sex: Female

DRUGS (2)
  1. VENTOLIN [Suspect]
     Dosage: INHALED
     Route: 055
  2. PREDNISOLONE [Concomitant]

REACTIONS (8)
  - ACUTE RESPIRATORY DISTRESS SYNDROME [None]
  - BRONCHIAL OBSTRUCTION [None]
  - DRUG INEFFECTIVE [None]
  - LOWER RESPIRATORY TRACT INFLAMMATION [None]
  - LUNG CONSOLIDATION [None]
  - PNEUMOMEDIASTINUM [None]
  - SPUTUM PURULENT [None]
  - SUBCUTANEOUS EMPHYSEMA [None]
